FAERS Safety Report 22088351 (Version 1)
Quarter: 2023Q1

REPORT INFORMATION
  Report Type: Spontaneous
  Country: LT (occurrence: LT)
  Receive Date: 20230313
  Receipt Date: 20230313
  Transmission Date: 20230418
  Serious: Yes (Life-Threatening, Hospitalization, Other)
  Sender: FDA-Public Use
  Company Number: LT-Accord-297441

PATIENT
  Age: 43 Year
  Sex: Male

DRUGS (12)
  1. CLOZAPINE [Suspect]
     Active Substance: CLOZAPINE
     Indication: Schizophrenia
  2. OLANZAPINE [Suspect]
     Active Substance: OLANZAPINE
     Indication: Schizophrenia
     Dosage: TABLETS PO 20 MG/D
     Route: 048
     Dates: start: 201901
  3. HALOPERIDOL DECANOATE [Suspect]
     Active Substance: HALOPERIDOL DECANOATE
     Indication: Schizophrenia
     Dosage: SOLUTION 0.5%. 1.0 INTRAMUSCULARLY 2 TIMES A DAY
     Route: 030
     Dates: start: 201901
  4. TRIHEXYPHENIDYL [Suspect]
     Active Substance: TRIHEXYPHENIDYL
     Indication: Schizophrenia
     Dosage: TABLETS 2-6 MG/DAY, 6 MG
     Dates: start: 201904
  5. CHLORPROMAZINE [Suspect]
     Active Substance: CHLORPROMAZINE
     Indication: Schizophrenia
     Dosage: SOLUTION 2.0 INTRAMUSCULARLY
     Route: 030
     Dates: start: 201904
  6. CHLORPROTHIXENE [Suspect]
     Active Substance: CHLORPROTHIXENE
     Indication: Schizophrenia
     Dosage: TABLETS UP TO 50 MG/D.
     Dates: start: 201904
  7. HALOPERIDOL DECANOATE [Suspect]
     Active Substance: HALOPERIDOL DECANOATE
     Indication: Schizophrenia
     Dosage: INTRAMUSCULAR INJECTIONS OF HALOPERIDOL DECANOATE SOLUTION 70.52 MG/ML EVERY 2 WEEKS
     Route: 030
     Dates: start: 201904
  8. CLOZAPINE [Suspect]
     Active Substance: CLOZAPINE
     Indication: Schizophrenia
  9. OLANZAPINE [Suspect]
     Active Substance: OLANZAPINE
     Indication: Schizophrenia
  10. OLANZAPINE [Suspect]
     Active Substance: OLANZAPINE
     Indication: Schizophrenia
  11. CHLORPROMAZINE [Suspect]
     Active Substance: CHLORPROMAZINE
     Indication: Schizophrenia
     Dosage: UP TO 50 MG/DAY WERE ADMINISTERED ADDITIONALLY ON DEMAND
  12. HALOPERIDOL DECANOATE [Suspect]
     Active Substance: HALOPERIDOL DECANOATE
     Indication: Schizophrenia

REACTIONS (4)
  - Ileus paralytic [Unknown]
  - Megacolon [Unknown]
  - Drug intolerance [Unknown]
  - Intestinal pseudo-obstruction [Unknown]

NARRATIVE: CASE EVENT DATE: 20190101
